FAERS Safety Report 9884666 (Version 2)
Quarter: 2014Q1

REPORT INFORMATION
  Report Type: Spontaneous
  Country: US (occurrence: US)
  Receive Date: 20140210
  Receipt Date: 20140210
  Transmission Date: 20141002
  Serious: No
  Sender: FDA-Public Use
  Company Number: US-ALLERGAN-1317464US

PATIENT
  Sex: Female

DRUGS (4)
  1. BOTOX COSMETIC [Suspect]
     Indication: SKIN WRINKLING
     Dosage: 22 UNITS, SINGLE
     Route: 030
     Dates: start: 20130913, end: 20130913
  2. BOTOX COSMETIC [Suspect]
     Indication: SKIN WRINKLING
     Dosage: 12 UNITS, SINGLE
     Route: 030
     Dates: start: 20130913, end: 20130913
  3. BOTOX COSMETIC [Suspect]
     Indication: SKIN WRINKLING
     Dosage: 8 UNITS, SINGLE
     Route: 030
     Dates: start: 20130913, end: 20130913
  4. BOTOX COSMETIC [Suspect]
     Dosage: 8 UNITS, SINGLE
     Route: 030
     Dates: start: 20130913, end: 20130913

REACTIONS (2)
  - Off label use [Unknown]
  - Therapeutic response decreased [Unknown]
